FAERS Safety Report 12338210 (Version 1)
Quarter: 2016Q2

REPORT INFORMATION
  Report Type: Report from Study
  Country: FR (occurrence: FR)
  Receive Date: 20160505
  Receipt Date: 20160505
  Transmission Date: 20160815
  Serious: Yes (Life-Threatening, Hospitalization, Other)
  Sender: FDA-Public Use
  Company Number: FR-BRISTOL-MYERS SQUIBB COMPANY-BMS-2016-031915

PATIENT
  Age: 50 Year
  Sex: Male
  Weight: 62 kg

DRUGS (2)
  1. SOFOSBUVIR [Suspect]
     Active Substance: SOFOSBUVIR
     Indication: HEPATITIS C VIRUS TEST
     Dosage: 400 MG, QD
     Route: 065
     Dates: start: 20140603
  2. DACLATASVIR DIHYDROCHLORIDE [Suspect]
     Active Substance: DACLATASVIR DIHYDROCHLORIDE
     Indication: HEPATITIS C VIRUS TEST
     Dosage: 60 MG, QD
     Route: 065
     Dates: start: 20140603

REACTIONS (5)
  - Hyponatraemia [Recovering/Resolving]
  - Aortic valve replacement [Unknown]
  - Streptococcal endocarditis [Recovered/Resolved with Sequelae]
  - Packed red blood cell transfusion [Unknown]
  - Mediastinal haematoma [Unknown]

NARRATIVE: CASE EVENT DATE: 20140627
